FAERS Safety Report 4423545-7 (Version None)
Quarter: 2004Q3

REPORT INFORMATION
  Report Type: 
  Country: None (occurrence: None)
  Receive Date: 20040811
  Receipt Date: 20040802
  Transmission Date: 20050211
  Serious: Yes (Hospitalization)
  Sender: FDA-Public Use
  Company Number: PHEH2004US08380

PATIENT
  Age: 60 Year
  Sex: Female

DRUGS (1)
  1. SERENTIL [Suspect]
     Indication: MENTAL DISORDER

REACTIONS (1)
  - MENTAL DISORDER [None]
